FAERS Safety Report 7811190-2 (Version None)
Quarter: 2011Q4

REPORT INFORMATION
  Report Type: 
  Country: None (occurrence: None)
  Receive Date: 20111012
  Receipt Date: 20111012
  Transmission Date: 20120403
  Serious: Yes (Hospitalization)
  Sender: FDA-Public Use
  Company Number: None

PATIENT
  Sex: Female
  Weight: 69.3 kg

DRUGS (3)
  1. FENTANYL [Concomitant]
  2. ERBITUX [Suspect]
     Dosage: 475 MG
  3. OXYCODONE HCL [Concomitant]

REACTIONS (4)
  - APHASIA [None]
  - UNRESPONSIVE TO STIMULI [None]
  - HEMIPARESIS [None]
  - FATIGUE [None]
